FAERS Safety Report 8263399-4 (Version None)
Quarter: 2012Q2

REPORT INFORMATION
  Report Type: 
  Country: None (occurrence: None)
  Receive Date: 20120405
  Receipt Date: 20120402
  Transmission Date: 20120825
  Serious: Yes (Other)
  Sender: FDA-Public Use
  Company Number: DE-PFIZER INC-2011249355

PATIENT
  Age: 71 Year
  Sex: Female
  Weight: 61 kg

DRUGS (11)
  1. ISICOM ^DESITIN^ [Concomitant]
     Dosage: 100 MG, 4X/DAY
  2. LEVOTHYROXINE SODIUM [Concomitant]
     Dosage: 125 UG, 1X/DAY
  3. BISOPROLOL [Concomitant]
     Dosage: 5 MG, 1X/DAY
  4. TORASEMIDE [Concomitant]
     Dosage: 5 MG, 1X/DAY
  5. LYRICA [Suspect]
     Indication: ALLODYNIA
     Dosage: 50+75MG
     Route: 048
     Dates: start: 20111003, end: 20111018
  6. PANTOZOL [Concomitant]
     Dosage: 20 MG, 1X/DAY
  7. MAGNESIUM DIASPORAL [Concomitant]
     Dosage: 300 MG, 1X/DAY
  8. NACOM - SLOW RELEASE [Concomitant]
     Dosage: 200 MG, 1X/DAY
  9. PROVAS ^SANOL^ [Concomitant]
     Dosage: 80 MG, 1X/DAY
  10. LYRICA [Suspect]
     Indication: PAIN IN EXTREMITY
  11. REQUIP [Concomitant]
     Dosage: 4 MG, 1X/DAY

REACTIONS (2)
  - BLOOD CHOLESTEROL INCREASED [None]
  - BLOOD CREATININE INCREASED [None]
